FAERS Safety Report 6989602-6 (Version None)
Quarter: 2010Q3

REPORT INFORMATION
  Report Type: 
  Country: None (occurrence: None)
  Receive Date: 20100916
  Receipt Date: 20100906
  Transmission Date: 20110219
  Serious: Yes (Death)
  Sender: FDA-Public Use
  Company Number: JP-ABBOTT-10P-087-0670682-00

PATIENT
  Age: 75 Year
  Sex: Male

DRUGS (8)
  1. LEUPROLIDE ACETATE [Suspect]
     Indication: PROSTATE CANCER STAGE III
     Route: 058
     Dates: start: 20060426, end: 20080312
  2. BICALUTAMIDE [Concomitant]
     Indication: PROSTATE CANCER STAGE III
     Route: 048
     Dates: start: 20060426
  3. PANALDINE [Concomitant]
     Indication: THROMBOSIS PROPHYLAXIS
     Route: 048
  4. CETAPRIL [Concomitant]
     Indication: HYPERTENSION
     Route: 048
  5. EMABERIN L [Concomitant]
     Indication: HYPERTENSION
     Route: 048
  6. DEPAS [Concomitant]
     Indication: NEUROSIS
     Route: 048
  7. KALLIKREIN [Concomitant]
     Indication: POOR PERIPHERAL CIRCULATION
     Route: 048
  8. URINORM [Concomitant]
     Indication: HYPERURICAEMIA
     Route: 048

REACTIONS (1)
  - AORTIC DISSECTION [None]
